FAERS Safety Report 6910449-0 (Version None)
Quarter: 2010Q3

REPORT INFORMATION
  Report Type: 
  Country: None (occurrence: None)
  Receive Date: 20100806
  Receipt Date: 20100802
  Transmission Date: 20110219
  Serious: Yes (Other)
  Sender: FDA-Public Use
  Company Number: BR-BRISTOL-MYERS SQUIBB COMPANY-15205404

PATIENT
  Age: 48 Year
  Sex: Male

DRUGS (10)
  1. ATAZANAVIR [Suspect]
     Indication: HIV INFECTION
     Dates: start: 20070201
  2. RITONAVIR [Suspect]
     Indication: HIV INFECTION
  3. TENOFOVIR DISOPROXIL FUMARATE [Suspect]
     Indication: HIV INFECTION
  4. LAMIVUDINE [Suspect]
     Indication: HIV INFECTION
  5. LAMIVUDINE + ZIDOVUDINE [Concomitant]
     Dosage: 1DF-1TAB EVERY 12HRS
  6. CLONAZEPAM [Concomitant]
  7. CITALOPRAM [Concomitant]
  8. DICLOFENAC SODIUM [Concomitant]
  9. AZITHROMYCIN [Concomitant]
  10. CIPROFLOXACIN [Concomitant]

REACTIONS (1)
  - GASTRITIS HAEMORRHAGIC [None]
